FAERS Safety Report 7560922-X (Version None)
Quarter: 2011Q2

REPORT INFORMATION
  Report Type: 
  Country: None (occurrence: None)
  Receive Date: 20110621
  Receipt Date: 20101207
  Transmission Date: 20111010
  Serious: No
  Sender: FDA-Public Use
  Company Number: US-ASTRAZENECA-2010SE23864

PATIENT
  Sex: Male

DRUGS (4)
  1. CRESTOR [Suspect]
     Route: 048
  2. ATACAND [Suspect]
     Route: 048
  3. TOPROL-XL [Suspect]
     Route: 048
  4. WATER PILL [Concomitant]

REACTIONS (4)
  - TOOTH FRACTURE [None]
  - CARDIAC DISCOMFORT [None]
  - DIZZINESS [None]
  - DIABETES MELLITUS [None]
